FAERS Safety Report 14010783 (Version 3)
Quarter: 2020Q1

REPORT INFORMATION
  Report Type: Spontaneous
  Country: US (occurrence: US)
  Receive Date: 20170926
  Receipt Date: 20200211
  Transmission Date: 20200409
  Serious: Yes (Life-Threatening, Hospitalization, Other)
  Sender: FDA-Public Use
  Company Number: US-WEST-WARD PHARMACEUTICALS CORP.-US-H14001-17-03562

PATIENT
  Age: 74 Year
  Sex: Female

DRUGS (2)
  1. MORPHINE [Suspect]
     Active Substance: MORPHINE
     Indication: PAIN
     Route: 037
  2. BUPIVACAINE. [Suspect]
     Active Substance: BUPIVACAINE
     Indication: PAIN
     Route: 037

REACTIONS (8)
  - Hypotonia [Unknown]
  - Peripheral sensorimotor neuropathy [Recovering/Resolving]
  - Sensory loss [Unknown]
  - Hypotension [Unknown]
  - Neurogenic shock [Unknown]
  - Generalised tonic-clonic seizure [Recovered/Resolved]
  - Depressed level of consciousness [Unknown]
  - Status epilepticus [Recovered/Resolved]
